FAERS Safety Report 4604172-5 (Version None)
Quarter: 2005Q1

REPORT INFORMATION
  Report Type: 
  Country: None (occurrence: None)
  Receive Date: 20050214
  Receipt Date: 20041014
  Transmission Date: 20050727
  Serious: No
  Sender: FDA-Public Use
  Company Number: US_0410107072

PATIENT
  Age: 68 Year
  Sex: Male
  Weight: 89 kg

DRUGS (15)
  1. CIALIS [Suspect]
     Indication: ERECTILE DYSFUNCTION
     Dosage: 20 MG
     Dates: start: 20040319
  2. PLAVIX [Concomitant]
  3. ASPIRIN [Concomitant]
  4. FOLIC ACID [Concomitant]
  5. NORVASC [Concomitant]
  6. PRAVACHOL [Concomitant]
  7. XANAX (ALPRAZOLAM DUM) [Concomitant]
  8. VITAMINS NOS [Concomitant]
  9. FISH OIL [Concomitant]
  10. COENZYME Q10 [Concomitant]
  11. SAW PALMETTO [Concomitant]
  12. SYNTHROID [Concomitant]
  13. SELENIUM TRACE METAL ADDITIVE [Concomitant]
  14. VIAGRA [Concomitant]
  15. LEVITRA [Concomitant]

REACTIONS (5)
  - BODY HEIGHT DECREASED [None]
  - DRUG INEFFECTIVE [None]
  - MACULAR HOLE [None]
  - NASAL CONGESTION [None]
  - WEIGHT DECREASED [None]
